FAERS Safety Report 8204393-9 (Version None)
Quarter: 2012Q1

REPORT INFORMATION
  Report Type: 
  Country: None (occurrence: None)
  Receive Date: 20120313
  Receipt Date: 20120313
  Transmission Date: 20120608
  Serious: Yes (Other)
  Sender: FDA-Public Use
  Company Number: None

PATIENT
  Age: 56 Year
  Sex: Female
  Weight: 113.39 kg

DRUGS (1)
  1. PRAVACHOL [Suspect]
     Indication: HYPERLIPIDAEMIA
     Dosage: 40MG
     Route: 048
     Dates: start: 20110410, end: 20110510

REACTIONS (2)
  - IMPAIRED WORK ABILITY [None]
  - ABDOMINAL PAIN UPPER [None]
